FAERS Safety Report 5036568-4 (Version None)
Quarter: 2006Q2

REPORT INFORMATION
  Report Type: 
  Country: None (occurrence: None)
  Receive Date: 20060623
  Receipt Date: 20060612
  Transmission Date: 20061013
  Serious: Yes (Life-Threatening, Other)
  Sender: FDA-Public Use
  Company Number: 2006062725

PATIENT
  Age: 61 Year
  Sex: Female

DRUGS (1)
  1. AROMASIN [Suspect]
     Indication: HORMONE THERAPY
     Dosage: ORAL
     Route: 048

REACTIONS (2)
  - COXSACKIE VIRAL INFECTION [None]
  - DIABETES MELLITUS INADEQUATE CONTROL [None]
